FAERS Safety Report 9030721 (Version 2)
Quarter: 2013Q2

REPORT INFORMATION
  Report Type: Spontaneous
  Country: SE (occurrence: SE)
  Receive Date: 20130123
  Receipt Date: 20130612
  Transmission Date: 20140414
  Serious: Yes (Death, Hospitalization, Other)
  Sender: FDA-Public Use
  Company Number: SE-VERTEX PHARMACEUTICALS INC.-2013-001004

PATIENT
  Age: 60 Year
  Sex: Male

DRUGS (10)
  1. INCIVO [Suspect]
     Indication: HEPATITIS C
     Dosage: 750 MG, TID
     Route: 065
     Dates: start: 20120518, end: 20120810
  2. COPEGUS [Concomitant]
     Dosage: DOSAGE FORM: UNSPECIFIED
     Route: 065
  3. PEGINTRON [Concomitant]
     Dosage: DOSAGE FORM: UNSPECIFIED
     Route: 065
  4. NATRIUMBIKARBONAT [Concomitant]
     Dosage: DOSAGE FORM: UNSPECIFIED
     Route: 065
  5. LOSARTAN [Concomitant]
     Dosage: DOSAGE FORM: UNSPECIFIED
     Route: 065
  6. TOREM [Concomitant]
     Dosage: DOSAGE FORM: UNSPECIFIED, 0.25 ONCE DAILY
     Route: 065
  7. ALLOPURINOL [Concomitant]
     Dosage: DOSAGE FORM: UNSPECIFIED
     Route: 065
  8. ROCALTROL [Concomitant]
     Dosage: DOSAGE FORM: UNSPECIFIED
     Route: 065
  9. IDEOS [Concomitant]
     Dosage: UNK, BID
     Route: 065
  10. PREDNISOLON [Concomitant]
     Dosage: DOSAGE FORM: UNSPECIFIED
     Route: 065

REACTIONS (2)
  - Bacterial infection [Fatal]
  - Haemorrhage [Fatal]
